FAERS Safety Report 16872174 (Version 7)
Quarter: 2020Q2

REPORT INFORMATION
  Report Type: Spontaneous
  Country: NL (occurrence: NL)
  Receive Date: 20191001
  Receipt Date: 20200602
  Transmission Date: 20200713
  Serious: Yes (Death, Hospitalization)
  Sender: FDA-Public Use
  Company Number: NL-TEVA-2019-NL-1115212

PATIENT
  Age: 79 Year
  Sex: Female
  Weight: 50 kg

DRUGS (1)
  1. MIRTAZAPINE TABLET, 30 MG (MILLIGRAM [Suspect]
     Active Substance: MIRTAZAPINE
     Indication: DEPRESSION
     Dosage: 1X30,30 MILLIGRAM?THERAPY END DATE:ASKU
     Route: 065
     Dates: start: 20190621

REACTIONS (2)
  - Depressed mood [Fatal]
  - Completed suicide [Fatal]

NARRATIVE: CASE EVENT DATE: 20190629
